FAERS Safety Report 20254751 (Version 1)
Quarter: 2021Q4

REPORT INFORMATION
  Report Type: Other
  Country: CN (occurrence: None)
  Receive Date: 20211230
  Receipt Date: 20211230
  Transmission Date: 20220303
  Serious: Yes (Other)
  Sender: FDA-Public Use
  Company Number: CN-ROCHE-2984477

PATIENT

DRUGS (8)
  1. BEVACIZUMAB [Suspect]
     Active Substance: BEVACIZUMAB
     Indication: Small cell lung cancer
     Route: 065
  2. ETOPOSIDE [Suspect]
     Active Substance: ETOPOSIDE
     Indication: Small cell lung cancer
     Route: 065
  3. PLATINUM [Suspect]
     Active Substance: PLATINUM
     Indication: Small cell lung cancer
     Route: 065
  4. IRINOTECAN [Suspect]
     Active Substance: IRINOTECAN
     Indication: Small cell lung cancer
     Route: 065
  5. CISPLATIN [Suspect]
     Active Substance: CISPLATIN
     Indication: Small cell lung cancer
     Route: 065
  6. PEMBROLIZUMAB [Suspect]
     Active Substance: PEMBROLIZUMAB
     Indication: Small cell lung cancer
     Route: 065
  7. CARBOPLATIN [Suspect]
     Active Substance: CARBOPLATIN
     Indication: Small cell lung cancer
     Route: 065
  8. NEDAPLATIN [Suspect]
     Active Substance: NEDAPLATIN
     Indication: Small cell lung cancer
     Route: 065

REACTIONS (15)
  - Neutropenia [Unknown]
  - Cough [Unknown]
  - Pneumonitis [Unknown]
  - Oesophagitis [Unknown]
  - Tachycardia [Unknown]
  - Pyrexia [Unknown]
  - Weight decreased [Unknown]
  - Dermatitis [Unknown]
  - Leukopenia [Unknown]
  - Anaemia [Unknown]
  - Thrombocytopenia [Unknown]
  - Bronchial obstruction [Unknown]
  - Decreased appetite [Unknown]
  - Pericardial effusion [Unknown]
  - Lymphopenia [Unknown]
